FAERS Safety Report 13829683 (Version 1)
Quarter: 2017Q3

REPORT INFORMATION
  Report Type: Spontaneous
  Country: US (occurrence: US)
  Receive Date: 20170803
  Receipt Date: 20170803
  Transmission Date: 20171127
  Serious: Yes (Hospitalization)
  Sender: FDA-Public Use
  Company Number: US-SUPERNUS PHARMACEUTICALS, INC.-2017SUP00193

PATIENT
  Age: 32 Year
  Sex: Female
  Weight: 144.22 kg

DRUGS (8)
  1. SYNTHROID [Concomitant]
     Active Substance: LEVOTHYROXINE SODIUM
     Dosage: 60 MG, 1X/DAY
  2. TEGRETOL [Suspect]
     Active Substance: CARBAMAZEPINE
     Dosage: UNK
     Dates: end: 20170701
  3. TROKENDI XR [Suspect]
     Active Substance: TOPIRAMATE
     Indication: EPILEPSY
     Dosage: 200 MG, 1X/DAY
     Route: 048
     Dates: start: 2017, end: 2017
  4. EFFEXOR [Concomitant]
     Active Substance: VENLAFAXINE HYDROCHLORIDE
     Dosage: 50 MG, 1X/DAY
  5. TOPAMAX [Suspect]
     Active Substance: TOPIRAMATE
     Indication: EPILEPSY
     Dosage: 200 MG, 2X/DAY
  6. TROKENDI XR [Suspect]
     Active Substance: TOPIRAMATE
     Dosage: 50 MG, UNK
     Route: 048
     Dates: start: 2017, end: 2017
  7. EFFEXOR [Concomitant]
     Active Substance: VENLAFAXINE HYDROCHLORIDE
     Dosage: 75 MG, 1X/DAY
  8. KLONOPIN [Concomitant]
     Active Substance: CLONAZEPAM
     Dosage: 5 MG, 3X/DAY

REACTIONS (2)
  - Unevaluable event [Recovered/Resolved]
  - Hospitalisation [Recovered/Resolved]

NARRATIVE: CASE EVENT DATE: 2017
